FAERS Safety Report 5452073-5 (Version None)
Quarter: 2007Q3

REPORT INFORMATION
  Report Type: 
  Country: None (occurrence: None)
  Receive Date: 20070912
  Receipt Date: 20070828
  Transmission Date: 20080115
  Serious: Yes (Life-Threatening)
  Sender: FDA-Public Use
  Company Number: 018161

PATIENT
  Sex: Female

DRUGS (2)
  1. CARBOPLATIN (CARBOPLATIN) INJECTION, 50MG [Suspect]
     Indication: RETINOBLASTOMA BILATERAL
  2. ETOPOSIDE [Suspect]
     Indication: RETINOBLASTOMA BILATERAL

REACTIONS (1)
  - ACUTE MYELOID LEUKAEMIA [None]
